FAERS Safety Report 4273640-0 (Version None)
Quarter: 2004Q1

REPORT INFORMATION
  Report Type: 
  Country: None (occurrence: None)
  Receive Date: 20040114
  Receipt Date: 20040105
  Transmission Date: 20041129
  Serious: Yes (Other)
  Sender: FDA-Public Use
  Company Number: NSADSS2002044181

PATIENT
  Age: 76 Year
  Sex: Female
  Weight: 64.4108 kg

DRUGS (8)
  1. REMICADE [Suspect]
     Indication: RHEUMATOID ARTHRITIS
     Dosage: 3 MG/KG, 1 IN 1 AS NECESSARY, INTRAVENOUS DRIP
     Route: 041
     Dates: start: 20000601, end: 20000601
  2. REMICADE [Suspect]
     Indication: RHEUMATOID ARTHRITIS
     Dosage: 3 MG/KG, 1 IN 1 AS NECESSARY, INTRAVENOUS DRIP
     Route: 041
     Dates: start: 20021001, end: 20021001
  3. REMICADE [Suspect]
     Indication: RHEUMATOID ARTHRITIS
     Dosage: 3 MG/KG, 1 IN 1 AS NECESSARY, INTRAVENOUS DRIP
     Route: 041
     Dates: start: 20030101, end: 20030101
  4. METHOTREXATE [Concomitant]
  5. ARTHROTEC [Concomitant]
  6. PREMARIN [Concomitant]
  7. ALENDRONATE (ALENDRONATE SODIUM) [Concomitant]
  8. AZATHIOPRINE [Concomitant]

REACTIONS (1)
  - NON-HODGKIN'S LYMPHOMA STAGE III [None]
